FAERS Safety Report 9013272 (Version 1)
Quarter: 2013Q1

REPORT INFORMATION
  Report Type: Spontaneous
  Country: US (occurrence: None)
  Receive Date: 20130107
  Receipt Date: 20130107
  Transmission Date: 20140127
  Serious: Yes (Other)
  Sender: FDA-Public Use
  Company Number: None

PATIENT
  Age: 21 Month
  Sex: Female
  Weight: 11.34 kg

DRUGS (1)
  1. MIRALAX [Suspect]
     Indication: CONSTIPATION
     Dosage: 2 CAPFULS FOR 2 DAYS, 1 CAPFUL TWICE DAY, ORAL
     Route: 048
     Dates: start: 20120810, end: 20121228

REACTIONS (7)
  - Abdominal distension [None]
  - Nausea [None]
  - Vomiting [None]
  - Muscle twitching [None]
  - Tremor [None]
  - Asthenia [None]
  - Sleep disorder [None]
